FAERS Safety Report 16650597 (Version 1)
Quarter: 2019Q3

REPORT INFORMATION
  Report Type: Spontaneous
  Country: US (occurrence: US)
  Receive Date: 20190731
  Receipt Date: 20190731
  Transmission Date: 20191004
  Serious: No
  Sender: FDA-Public Use
  Company Number: US-APOTEX-2019AP016444

PATIENT
  Sex: Male

DRUGS (2)
  1. MODAFINIL TABLETS USP [Suspect]
     Active Substance: MODAFINIL
     Dosage: UNK, Q. AF (HALF TABLET)
     Route: 065
     Dates: start: 20190521
  2. MODAFINIL TABLETS USP [Suspect]
     Active Substance: MODAFINIL
     Indication: PRODUCT USED FOR UNKNOWN INDICATION
     Dosage: UNK, Q.AM (HALF TABLET)
     Route: 065
     Dates: start: 20190521

REACTIONS (4)
  - Fatigue [Unknown]
  - Drug ineffective [Unknown]
  - Abdominal discomfort [Unknown]
  - Hypersomnia [Unknown]
